FAERS Safety Report 4470696-7 (Version None)
Quarter: 2004Q4

REPORT INFORMATION
  Report Type: 
  Country: None (occurrence: None)
  Receive Date: 20041006
  Receipt Date: 20040924
  Transmission Date: 20050328
  Serious: Yes (Hospitalization)
  Sender: FDA-Public Use
  Company Number: 209263

PATIENT
  Age: 67 Year

DRUGS (5)
  1. RITUXAN [Suspect]
     Indication: DIFFUSE LARGE B-CELL LYMPHOMA
     Route: 065
     Dates: start: 20040726
  2. CYCLOPHOSPHAMIDE [Suspect]
     Route: 065
     Dates: start: 20040727
  3. DOXORUBICIN HYDROCHLORIDE [Suspect]
     Route: 065
     Dates: start: 20040727
  4. VINCRISTINE [Suspect]
     Route: 065
     Dates: start: 20040727
  5. PREDNISONE [Suspect]
     Route: 065
     Dates: start: 20040727

REACTIONS (5)
  - CARDIOVASCULAR DISORDER [None]
  - DEHYDRATION [None]
  - DIARRHOEA [None]
  - MUCOSAL INFLAMMATION [None]
  - STOMATITIS [None]
